FAERS Safety Report 5350121-4 (Version None)
Quarter: 2007Q2

REPORT INFORMATION
  Report Type: 
  Country: None (occurrence: None)
  Receive Date: 20070607
  Receipt Date: 20070528
  Transmission Date: 20071010
  Serious: Yes (Death, Life-Threatening, Hospitalization, Other)
  Sender: FDA-Public Use
  Company Number: JP-MERCK-0504USA02456

PATIENT
  Age: 33 Year
  Sex: Female

DRUGS (7)
  1. CLINORIL [Suspect]
     Indication: SLE ARTHRITIS
     Route: 048
     Dates: start: 20050119, end: 20050207
  2. CYTOTEC [Suspect]
     Indication: SLE ARTHRITIS
     Route: 048
     Dates: start: 20050119, end: 20050207
  3. ACETAMINOPHEN [Suspect]
     Indication: NASOPHARYNGITIS
     Route: 048
     Dates: start: 20050202, end: 20050207
  4. NEO-AMUNOLL [Suspect]
     Indication: NASOPHARYNGITIS
     Route: 048
     Dates: start: 20050202, end: 20050207
  5. CALONAL [Suspect]
     Indication: NASOPHARYNGITIS
     Route: 048
     Dates: start: 20050202, end: 20050207
  6. PREDNISOLONE [Concomitant]
     Route: 048
     Dates: end: 20050118
  7. PREDNISOLONE [Concomitant]
     Route: 048
     Dates: start: 20050119, end: 20050504

REACTIONS (14)
  - ASCITES [None]
  - DIARRHOEA [None]
  - HAEMATURIA [None]
  - HEPATIC FAILURE [None]
  - HERPES ZOSTER [None]
  - HYDRONEPHROSIS [None]
  - LIVER ABSCESS [None]
  - PANCREATIC PSEUDOCYST [None]
  - PANCREATITIS [None]
  - PNEUMOCYSTIS JIROVECI PNEUMONIA [None]
  - PSEUDOMONAL BACTERAEMIA [None]
  - RENAL FAILURE [None]
  - RESPIRATORY FAILURE [None]
  - TOXIC EPIDERMAL NECROLYSIS [None]
